FAERS Safety Report 8573880-6 (Version None)
Quarter: 2012Q3

REPORT INFORMATION
  Report Type: 
  Country: None (occurrence: None)
  Receive Date: 20120806
  Receipt Date: 20120313
  Transmission Date: 20120928
  Serious: No
  Sender: FDA-Public Use
  Company Number: US-GLAXOSMITHKLINE-A0969661A

PATIENT
  Age: 78 Year
  Sex: Female
  Weight: 96.4 kg

DRUGS (8)
  1. ASPIRIN [Concomitant]
  2. FLUTICASONE PROPIONATE [Suspect]
     Indication: ASTHMA
     Dosage: 2PUFF TWICE PER DAY
     Route: 055
     Dates: start: 20110901, end: 20120301
  3. LEVOTHYROXINE SODIUM [Concomitant]
  4. VITAMIN D [Concomitant]
  5. ALBUTEROL [Concomitant]
  6. CARDIZEM [Concomitant]
  7. CARTIA XT [Concomitant]
  8. PROAIR HFA [Concomitant]

REACTIONS (6)
  - SPEECH DISORDER [None]
  - COUGH [None]
  - DYSPHONIA [None]
  - OROPHARYNGEAL PAIN [None]
  - NASOPHARYNGITIS [None]
  - APHONIA [None]
